FAERS Safety Report 6575632-5 (Version None)
Quarter: 2010Q1

REPORT INFORMATION
  Report Type: 
  Country: None (occurrence: None)
  Receive Date: 20100209
  Receipt Date: 20100201
  Transmission Date: 20100710
  Serious: Yes (Hospitalization)
  Sender: FDA-Public Use
  Company Number: D0066101A

PATIENT
  Sex: Male

DRUGS (3)
  1. ALKERAN [Suspect]
     Indication: MULTIPLE MYELOMA
     Dosage: 120MG CUMULATIVE DOSE
     Route: 048
     Dates: start: 20100111, end: 20100118
  2. VELCADE [Concomitant]
     Indication: MULTIPLE MYELOMA
     Dosage: 1.3MGM2 PER DAY
     Route: 065
     Dates: start: 20100111, end: 20100114
  3. PREDNISOLON [Concomitant]
     Indication: MULTIPLE MYELOMA
     Dosage: 60MGM2 PER DAY
     Route: 065
     Dates: start: 20100111, end: 20100114

REACTIONS (3)
  - DIALYSIS [None]
  - DRUG TOXICITY [None]
  - OVERDOSE [None]
